FAERS Safety Report 12625187 (Version 2)
Quarter: 2016Q3

REPORT INFORMATION
  Report Type: Spontaneous
  Country: US (occurrence: US)
  Receive Date: 20160805
  Receipt Date: 20160810
  Transmission Date: 20161109
  Serious: Yes (Disabling, Other)
  Sender: FDA-Public Use
  Company Number: PHEH2016US019169

PATIENT
  Age: 53 Year
  Sex: Male
  Weight: 73 kg

DRUGS (1)
  1. VOTRIENT [Suspect]
     Active Substance: PAZOPANIB HYDROCHLORIDE
     Indication: OSTEOSARCOMA
     Dosage: 400 MG, QD
     Route: 048
     Dates: start: 20160526

REACTIONS (6)
  - Hypertension [Not Recovered/Not Resolved]
  - Hypothyroidism [Not Recovered/Not Resolved]
  - Palmar-plantar erythrodysaesthesia syndrome [Unknown]
  - Diarrhoea [Not Recovered/Not Resolved]
  - Tenderness [Not Recovered/Not Resolved]
  - Food interaction [Unknown]

NARRATIVE: CASE EVENT DATE: 20160601
